FAERS Safety Report 20610669 (Version 1)
Quarter: 2022Q1

REPORT INFORMATION
  Report Type: Spontaneous
  Country: ES (occurrence: ES)
  Receive Date: 20220318
  Receipt Date: 20220318
  Transmission Date: 20220424
  Serious: Yes (Life-Threatening)
  Sender: FDA-Public Use
  Company Number: None

PATIENT
  Age: 58 Year
  Sex: Male
  Weight: 83 kg

DRUGS (10)
  1. LENALIDOMIDE [Suspect]
     Active Substance: LENALIDOMIDE
     Indication: Plasma cell myeloma
     Dosage: 25 MG A-CO  (8089A)
     Route: 048
     Dates: start: 20211022
  2. BORTEZOMIB [Suspect]
     Active Substance: BORTEZOMIB
     Indication: Plasma cell myeloma
     Dosage: 2.44 MG, (2928A)
     Route: 058
     Dates: start: 20211022
  3. BELANTAMAB MAFODOTIN [Suspect]
     Active Substance: BELANTAMAB MAFODOTIN
     Indication: Plasma cell myeloma
     Dosage: 200 MG, (9998A)
     Route: 042
     Dates: start: 20211022
  4. ACYCLOVIR [Concomitant]
     Active Substance: ACYCLOVIR
     Indication: Plasma cell myeloma
     Dosage: 400 MG C/12 H, FORM STRENGTH-200 MG EFG TABLETS, 25 TABLETS
     Route: 048
     Dates: start: 20211022
  5. OMEPRAZOLE [Concomitant]
     Active Substance: OMEPRAZOLE
     Indication: Plasma cell myeloma
     Dosage: 20 MG A-DE, EFG, 56 CAPSULES (BOTTLE), FORM STRENGTH- 20 MG
     Route: 048
     Dates: start: 20211023
  6. ACETAMINOPHEN [Concomitant]
     Active Substance: ACETAMINOPHEN
     Indication: Plasma cell myeloma
     Dosage: 1 G DECODE, 1 G TABLETS EFG, 40 TABLETS
     Route: 048
     Dates: start: 20211022
  7. CALCIUM CARBONATE [Concomitant]
     Active Substance: CALCIUM CARBONATE
     Indication: Plasma cell myeloma
     Dosage: 1250 MG CE, 90 TABLETS, FORM STRENGTH: 500 MG
     Route: 048
     Dates: start: 20220124
  8. ASPIRIN [Concomitant]
     Active Substance: ASPIRIN
     Indication: Plasma cell myeloma
     Dosage: 100 MG DE, FORM STRENGTH: 100 MG, 30 TABLETS
     Route: 048
     Dates: start: 20211023
  9. LORMETAZEPAM [Concomitant]
     Active Substance: LORMETAZEPAM
     Indication: Insomnia
     Dosage: 1 MG C/24H NOC,  FORM STRENGTH:1 MG EFG, 30 TABLETS
     Route: 048
     Dates: start: 20211129
  10. FML [Concomitant]
     Active Substance: FLUOROMETHOLONE
     Indication: Keratitis
     Dosage: 1 GTS C/6 HOURS, 1 DROPPER BOTTLE OF 5 ML, FORM STRENGTH: 1 MG/ML
     Route: 047
     Dates: start: 20220111, end: 20220210

REACTIONS (2)
  - Thrombosis [Recovering/Resolving]
  - Interstitial lung disease [Recovering/Resolving]

NARRATIVE: CASE EVENT DATE: 20220131
